FAERS Safety Report 5632286-X (Version None)
Quarter: 2008Q1

REPORT INFORMATION
  Report Type: 
  Country: None (occurrence: None)
  Receive Date: 20080220
  Receipt Date: 20071211
  Transmission Date: 20080703
  Serious: No
  Sender: FDA-Public Use
  Company Number: US-BAYER-200714109BCC

PATIENT
  Sex: Female

DRUGS (2)
  1. FINACEA [Suspect]
     Indication: ROSACEA
     Route: 061
  2. FINACEA [Suspect]
     Route: 061

REACTIONS (1)
  - APPLICATION SITE IRRITATION [None]
